FAERS Safety Report 24624405 (Version 2)
Quarter: 2025Q1

REPORT INFORMATION
  Report Type: Spontaneous
  Country: CA (occurrence: CA)
  Receive Date: 20241115
  Receipt Date: 20250107
  Transmission Date: 20250409
  Serious: Yes (Hospitalization, Other)
  Sender: AMERICAN REGENT
  Company Number: CA-AMERICAN REGENT INC-2024004199

PATIENT
  Age: 74 Year
  Sex: Female

DRUGS (1)
  1. VENOFER [Suspect]
     Active Substance: IRON SUCROSE
     Indication: Iron deficiency anaemia
     Route: 042
     Dates: start: 20230511, end: 20230511

REACTIONS (5)
  - Angina pectoris [Recovered/Resolved]
  - Hot flush [Recovered/Resolved]
  - Asthenia [Recovered/Resolved]
  - Chest pain [Recovered/Resolved]
  - Nausea [Recovered/Resolved]

NARRATIVE: CASE EVENT DATE: 20230511
